FAERS Safety Report 4498111-8 (Version None)
Quarter: 2004Q3

REPORT INFORMATION
  Report Type: 
  Country: None (occurrence: None)
  Receive Date: 20040927
  Receipt Date: 20040608
  Transmission Date: 20050211
  Serious: No
  Sender: FDA-Public Use
  Company Number: USA040669600

PATIENT
  Age: 9 Year
  Sex: Male
  Weight: 30 kg

DRUGS (2)
  1. STRATTERA [Suspect]
     Dosage: 25 MG IN THE MORNING
     Dates: start: 20021201, end: 20031201
  2. CLONIDINE [Concomitant]

REACTIONS (3)
  - DRUG INEFFECTIVE [None]
  - LETHARGY [None]
  - PSYCHOMOTOR HYPERACTIVITY [None]
